FAERS Safety Report 10879321 (Version 1)
Quarter: 2015Q1

REPORT INFORMATION
  Report Type: Spontaneous
  Country: US (occurrence: US)
  Receive Date: 20150302
  Receipt Date: 20150302
  Transmission Date: 20150721
  Serious: Yes (Death, Hospitalization, Other)
  Sender: FDA-Public Use
  Company Number: US-GSKJP-DK201408326002

PATIENT
  Age: 80 Year
  Sex: Male
  Weight: 77 kg

DRUGS (1)
  1. MELPHALAN [Suspect]
     Active Substance: MELPHALAN
     Indication: PLASMA CELL MYELOMA
     Dosage: 25 MG, 1D
     Route: 048
     Dates: start: 20130603

REACTIONS (11)
  - Staphylococcal infection [Unknown]
  - Confusional state [Unknown]
  - Staphylococcal sepsis [Unknown]
  - Ankle fracture [Unknown]
  - Death [Fatal]
  - Renal failure [Unknown]
  - Pulmonary oedema [Unknown]
  - Wound [Unknown]
  - Acute kidney injury [Unknown]
  - Hallucination [Unknown]
  - Adverse event [Unknown]

NARRATIVE: CASE EVENT DATE: 20140114
